FAERS Safety Report 7810884-2 (Version None)
Quarter: 2011Q4

REPORT INFORMATION
  Report Type: 
  Country: None (occurrence: None)
  Receive Date: 20111013
  Receipt Date: 20111003
  Transmission Date: 20120403
  Serious: Yes (Other)
  Sender: FDA-Public Use
  Company Number: US-JNJFOC-20111001740

PATIENT
  Sex: Male
  Weight: 85.73 kg

DRUGS (6)
  1. TESTOSTERONE [Concomitant]
     Indication: HORMONE REPLACEMENT THERAPY
     Dates: start: 20110501
  2. HYDROCHLOROTHIAZIDE [Concomitant]
     Indication: BLOOD PRESSURE
     Route: 048
  3. PRAVASTATIN [Concomitant]
     Indication: BLOOD CHOLESTEROL ABNORMAL
     Route: 048
     Dates: start: 20090101
  4. SIMPONI [Suspect]
     Indication: ANKYLOSING SPONDYLITIS
     Route: 058
     Dates: start: 20110501
  5. INDERAL [Concomitant]
     Indication: HEADACHE
     Route: 048
  6. TIZANIDINE HCL [Concomitant]
     Indication: MUSCLE RELAXANT THERAPY
     Dosage: 4-8 MG AT BEDTIME
     Dates: start: 20090101

REACTIONS (4)
  - DRUG DOSE OMISSION [None]
  - OSTEOPENIA [None]
  - DEVICE FAILURE [None]
  - BLOOD CHOLESTEROL INCREASED [None]
